FAERS Safety Report 9577128 (Version 1)
Quarter: 2013Q4

REPORT INFORMATION
  Report Type: Spontaneous
  Country: US (occurrence: US)
  Receive Date: 20131001
  Receipt Date: 20131001
  Transmission Date: 20140711
  Serious: No
  Sender: FDA-Public Use
  Company Number: US-AMGEN-USASP2013006455

PATIENT
  Sex: Female
  Weight: 73 kg

DRUGS (6)
  1. ENBREL [Suspect]
     Indication: PRODUCT USED FOR UNKNOWN INDICATION
     Dosage: 50 MG, UNK
  2. TYLENOL W/CODEINE [Concomitant]
     Dosage: UNK
  3. ULTRAM [Concomitant]
     Dosage: 50 MG, UNK
  4. OXCARBAZEPINE [Concomitant]
     Dosage: 300 MG, UNK
  5. ESTRADIOL [Concomitant]
     Dosage: 2 MG, UNK
  6. CARBAMAZEPIN [Concomitant]
     Dosage: 200 MG ER, UNK

REACTIONS (2)
  - Facial nerve disorder [Unknown]
  - Facial spasm [Unknown]
